FAERS Safety Report 4323114-3 (Version None)
Quarter: 2004Q1

REPORT INFORMATION
  Report Type: 
  Country: None (occurrence: None)
  Receive Date: 20040322
  Receipt Date: 20040315
  Transmission Date: 20041129
  Serious: Yes (Other)
  Sender: FDA-Public Use
  Company Number: 2004203791US

PATIENT
  Age: 27 Year
  Sex: Female
  Weight: 68 kg

DRUGS (1)
  1. DEPO-PROVERA [Suspect]
     Indication: CONTRACEPTION
     Dosage: 150 MG, 1ST INJ.,
     Dates: start: 19970301, end: 19970301

REACTIONS (2)
  - AMENORRHOEA [None]
  - ANOVULATORY CYCLE [None]
